FAERS Safety Report 7417580-4 (Version None)
Quarter: 2011Q2

REPORT INFORMATION
  Report Type: 
  Country: None (occurrence: None)
  Receive Date: 20110408
  Receipt Date: 20110324
  Transmission Date: 20111010
  Serious: Yes (Other)
  Sender: FDA-Public Use
  Company Number: WWISSUE-557

PATIENT
  Age: 71 Year
  Sex: Female
  Weight: 127.0072 kg

DRUGS (1)
  1. COLCHICINE [Suspect]
     Dosage: 1-2 A DAY PRN
     Dates: start: 20110101

REACTIONS (1)
  - DIARRHOEA [None]
